FAERS Safety Report 21820849 (Version 1)
Quarter: 2023Q1

REPORT INFORMATION
  Report Type: Spontaneous
  Country: US (occurrence: US)
  Receive Date: 20230105
  Receipt Date: 20230105
  Transmission Date: 20230417
  Serious: No
  Sender: FDA-Public Use
  Company Number: US-SA-SAC20230104001170

PATIENT
  Sex: Male

DRUGS (1)
  1. DUPIXENT [Suspect]
     Active Substance: DUPILUMAB
     Indication: Dermatitis atopic
     Dosage: 600MG FREQUENCY: DAY 1 INJECT 2 SYRINGES UNDER THE SKIN ON DAY 1, THEN INJECT 1 SYRINGE ON DAY 15, T
     Route: 058
     Dates: start: 202212, end: 202212

REACTIONS (1)
  - Drug ineffective [Unknown]
